FAERS Safety Report 14090467 (Version 2)
Quarter: 2017Q4

REPORT INFORMATION
  Report Type: Spontaneous
  Country: US (occurrence: US)
  Receive Date: 20171015
  Receipt Date: 20171106
  Transmission Date: 20180321
  Serious: No
  Sender: FDA-Public Use
  Company Number: US-TEVA-815046ACC

PATIENT
  Age: 35 Year
  Sex: Female

DRUGS (1)
  1. PARAGARD T 380A [Suspect]
     Active Substance: COPPER
     Indication: CONTRACEPTION
     Dates: end: 20170619

REACTIONS (2)
  - Device breakage [Recovered/Resolved with Sequelae]
  - Complication associated with device [Recovered/Resolved with Sequelae]

NARRATIVE: CASE EVENT DATE: 20170619
